FAERS Safety Report 9040074 (Version 1)
Quarter: 2013Q1

REPORT INFORMATION
  Report Type: Report from Study
  Country: US (occurrence: US)
  Receive Date: 20130130
  Receipt Date: 20130130
  Transmission Date: 20140127
  Serious: No
  Sender: FDA-Public Use
  Company Number: US-ABBOTT-12P-163-0952001-00

PATIENT
  Age: 41 Year
  Sex: Female

DRUGS (4)
  1. HUMIRA 40 MG/0.8 ML PEN [Suspect]
     Indication: PSORIASIS
     Dates: start: 201202
  2. LORAZEPAM [Concomitant]
     Indication: ANXIETY
     Dosage: DAILY
  3. AMBIEN [Concomitant]
     Indication: INSOMNIA
     Dosage: 10 MG AT NIGHT
  4. LOSARTAN [Concomitant]
     Indication: HYPERTENSION

REACTIONS (1)
  - Injection site haemorrhage [Recovered/Resolved]
